FAERS Safety Report 9305514 (Version 1)
Quarter: 2013Q2

REPORT INFORMATION
  Report Type: Spontaneous
  Country: US (occurrence: US)
  Receive Date: 20130523
  Receipt Date: 20130523
  Transmission Date: 20140414
  Serious: Yes (Other)
  Sender: FDA-Public Use
  Company Number: US-ASTRAZENECA-2013SE34383

PATIENT
  Age: 79 Year
  Sex: Male
  Weight: 70.3 kg

DRUGS (15)
  1. NEXIUM [Suspect]
     Indication: HYPERCHLORHYDRIA
     Route: 048
     Dates: start: 2009
  2. BRILINTA [Suspect]
     Indication: CARDIOVASCULAR EVENT PROPHYLAXIS
     Route: 048
     Dates: start: 201210, end: 20130508
  3. BRILINTA [Suspect]
     Indication: CARDIOVASCULAR EVENT PROPHYLAXIS
     Route: 048
     Dates: start: 20130514
  4. ZANTAC [Concomitant]
     Indication: HYPERCHLORHYDRIA
     Route: 048
     Dates: start: 2012
  5. CENTRUM MULTIVITAMIN [Concomitant]
     Dosage: 1 VITAMIN DAILY
     Route: 048
  6. SOL PALMETTO [Concomitant]
     Indication: PROSTATIC DISORDER
     Route: 048
  7. VITAMIN D [Concomitant]
     Route: 048
  8. CARVEDILOL [Concomitant]
     Route: 048
     Dates: start: 201210
  9. ASPIRIN [Concomitant]
     Route: 048
     Dates: start: 201210
  10. ATORVASTATIN [Concomitant]
     Route: 048
     Dates: start: 201210
  11. RANEXA [Concomitant]
     Route: 048
     Dates: start: 201210
  12. LOSARTAN [Concomitant]
     Route: 048
     Dates: start: 201210
  13. ANTIBIOTIC TREATMENT FOR TOOTH [Concomitant]
     Indication: INFECTION
     Dosage: UNKNOWN UNK
     Route: 048
     Dates: start: 20130430, end: 20130506
  14. ANTIBIOTIC TREATMENT FOR TOOTH [Concomitant]
     Indication: INFECTION
     Route: 048
  15. CARAFATE LIQUID [Concomitant]
     Indication: HYPERCHLORHYDRIA
     Dosage: 1 GM AC
     Route: 048

REACTIONS (4)
  - Myocardial infarction [Unknown]
  - Toothache [Recovered/Resolved]
  - Tooth infection [Recovered/Resolved]
  - Gingival bleeding [Unknown]
